FAERS Safety Report 18273431 (Version 1)
Quarter: 2020Q3

REPORT INFORMATION
  Report Type: Spontaneous
  Country: US (occurrence: US)
  Receive Date: 20200916
  Receipt Date: 20200916
  Transmission Date: 20201103
  Serious: No
  Sender: FDA-Public Use
  Company Number: None

PATIENT
  Age: 64 Year
  Sex: Male
  Weight: 90.45 kg

DRUGS (6)
  1. FLONASE [Concomitant]
     Active Substance: FLUTICASONE PROPIONATE
  2. AMLODIPINE [Concomitant]
     Active Substance: AMLODIPINE BESYLATE
  3. EZYTIMIBE [Concomitant]
  4. ASPIRIN (LOW DOSE) [Concomitant]
  5. METROPOLOL [Concomitant]
     Active Substance: METOPROLOL
  6. REPATHA [Suspect]
     Active Substance: EVOLOCUMAB
     Indication: BLOOD CHOLESTEROL INCREASED
     Dosage: ?          QUANTITY:1 INJECTION(S);OTHER FREQUENCY:TWICE MONTHLY;?
     Route: 030
     Dates: start: 20170101, end: 20200901

REACTIONS (3)
  - Ear infection [None]
  - Deafness [None]
  - Vertigo [None]

NARRATIVE: CASE EVENT DATE: 20200219
